FAERS Safety Report 5914723-6 (Version None)
Quarter: 2008Q4

REPORT INFORMATION
  Report Type: 
  Country: None (occurrence: None)
  Receive Date: 20081010
  Receipt Date: 20080929
  Transmission Date: 20090506
  Serious: Yes (Other)
  Sender: FDA-Public Use
  Company Number: US-JNJFOC-20080601851

PATIENT
  Sex: Female

DRUGS (2)
  1. ULTRAM [Suspect]
     Indication: DEPRESSION
     Route: 065
  2. EFFEXOR [Concomitant]
     Indication: DEPRESSION

REACTIONS (2)
  - OFF LABEL USE [None]
  - THERAPEUTIC RESPONSE UNEXPECTED [None]
